FAERS Safety Report 7216047-6 (Version None)
Quarter: 2011Q1

REPORT INFORMATION
  Report Type: 
  Country: None (occurrence: None)
  Receive Date: 20110107
  Receipt Date: 20101230
  Transmission Date: 20110831
  Serious: Yes (Hospitalization, Other)
  Sender: FDA-Public Use
  Company Number: US-JNJCH-2010028993

PATIENT
  Sex: Female

DRUGS (2)
  1. MULTI-SYMPTOM ROLAIDS PLUS ANTI-GAS SOFTCHEWS FRUIT [Suspect]
     Indication: GASTROOESOPHAGEAL REFLUX DISEASE
     Dosage: TEXT:ONE AT A TIME, NO MORE THAN 3
     Route: 048
  2. PROTONIX [Suspect]
     Indication: PRODUCT USED FOR UNKNOWN INDICATION
     Dosage: TEXT:UNKNOWN
     Route: 065

REACTIONS (5)
  - OFF LABEL USE [None]
  - PRODUCT CONTAMINATION PHYSICAL [None]
  - CONDITION AGGRAVATED [None]
  - DIVERTICULITIS [None]
  - PRODUCT TASTE ABNORMAL [None]
